FAERS Safety Report 10950992 (Version 2)
Quarter: 2015Q2

REPORT INFORMATION
  Report Type: Spontaneous
  Country: US (occurrence: US)
  Receive Date: 20150324
  Receipt Date: 20150407
  Transmission Date: 20150821
  Serious: Yes (Hospitalization, Other)
  Sender: FDA-Public Use
  Company Number: US-PFIZER INC-2015089057

PATIENT
  Age: 22 Month
  Sex: Female
  Weight: 10 kg

DRUGS (1)
  1. XYLOCAINE [Suspect]
     Active Substance: LIDOCAINE HYDROCHLORIDE
     Indication: STOMATITIS
     Dosage: 50 MG/KG (25 ML OF A 2% SOLUTION), UNK
     Route: 048

REACTIONS (6)
  - Respiratory arrest [Recovered/Resolved]
  - Accidental overdose [Unknown]
  - Seizure [Recovered/Resolved]
  - Hypertension [Recovered/Resolved]
  - Toxicity to various agents [Recovered/Resolved]
  - Tachycardia [Recovered/Resolved]
